FAERS Safety Report 18077833 (Version 3)
Quarter: 2020Q3

REPORT INFORMATION
  Report Type: Spontaneous
  Country: JP (occurrence: JP)
  Receive Date: 20200728
  Receipt Date: 20200811
  Transmission Date: 20201103
  Serious: Yes (Other)
  Sender: FDA-Public Use
  Company Number: JP-UCBSA-2020016285

PATIENT
  Age: 13 Year
  Sex: Female

DRUGS (4)
  1. LEVOCARNITINE. [Concomitant]
     Active Substance: LEVOCARNITINE
     Indication: EPILEPSY
     Dosage: 250 MG, BID
     Route: 048
     Dates: start: 20190408
  2. XYZAL [Suspect]
     Active Substance: LEVOCETIRIZINE DIHYDROCHLORIDE
     Indication: RHINITIS ALLERGIC
     Dosage: 2.5 MILLIGRAM, 2X/DAY (BID)
     Route: 048
     Dates: start: 20200302, end: 20200331
  3. VALPROATE SODIUM. [Concomitant]
     Active Substance: VALPROATE SODIUM
     Indication: EPILEPSY
     Dosage: 400 MILLIGRAM, 2X/DAY (BID)
     Route: 048
     Dates: start: 20190408
  4. XYZAL [Suspect]
     Active Substance: LEVOCETIRIZINE DIHYDROCHLORIDE
     Indication: SEASONAL ALLERGY

REACTIONS (4)
  - Disorientation [Recovered/Resolved]
  - Epilepsy [Recovered/Resolved]
  - Loss of consciousness [Recovered/Resolved]
  - Headache [Recovered/Resolved]

NARRATIVE: CASE EVENT DATE: 20200331
